FAERS Safety Report 6781524-9 (Version None)
Quarter: 2010Q2

REPORT INFORMATION
  Report Type: 
  Country: None (occurrence: None)
  Receive Date: 20100617
  Receipt Date: 20100617
  Transmission Date: 20101027
  Serious: Yes (Life-Threatening, Hospitalization, Disabling)
  Sender: FDA-Public Use
  Company Number: None

PATIENT
  Sex: Male
  Weight: 72.5755 kg

DRUGS (1)
  1. AMIODARONE HCL [Suspect]
     Indication: CARDIAC DISORDER
     Dosage: 200 MG DAILY
     Dates: start: 20060101, end: 20090101

REACTIONS (3)
  - LUNG DISORDER [None]
  - RETINAL HAEMORRHAGE [None]
  - THYROID DISORDER [None]
